FAERS Safety Report 8764500 (Version 1)
Quarter: 2012Q4

REPORT INFORMATION
  Report Type: 
  Country: US (occurrence: US)
  Receive Date: 20120831
  Receipt Date: 20120831
  Transmission Date: 20130627
  Serious: No
  Sender: FDA-Public Use
  Company Number: US-BAYER-2012-077633

PATIENT
  Sex: Male

DRUGS (1)
  1. CIPRO [Suspect]
     Indication: GASTRITIS
     Dosage: UNK

REACTIONS (1)
  - Ligament sprain [None]
